FAERS Safety Report 14939724 (Version 1)
Quarter: 2018Q2

REPORT INFORMATION
  Report Type: Spontaneous
  Country: CA (occurrence: CA)
  Receive Date: 20180525
  Receipt Date: 20180525
  Transmission Date: 20180711
  Serious: Yes (Other)
  Sender: FDA-Public Use
  Company Number: CA-TEVA-2018-CA-895656

PATIENT
  Age: 11 Year
  Sex: Male

DRUGS (8)
  1. VINCRISTINE SULFATE. [Suspect]
     Active Substance: VINCRISTINE SULFATE
     Indication: ACUTE LYMPHOCYTIC LEUKAEMIA
     Route: 042
  2. DOXORUBICIN HYDROCHLORIDE. [Concomitant]
     Active Substance: DOXORUBICIN HYDROCHLORIDE
  3. PEG/L-ASPARAGINASE [Concomitant]
     Active Substance: PEGASPARGASE
  4. HYDROCORTISONE. [Concomitant]
     Active Substance: HYDROCORTISONE
  5. METHOTREXATE. [Concomitant]
     Active Substance: METHOTREXATE
  6. ASPARAGINASE (E.COLI) [Concomitant]
     Active Substance: ASPARAGINASE
  7. CYTARABINE. [Concomitant]
     Active Substance: CYTARABINE
  8. MERCAPTOPURINE. [Concomitant]
     Active Substance: MERCAPTOPURINE

REACTIONS (9)
  - Arthralgia [Recovered/Resolved]
  - Bone pain [Recovered/Resolved]
  - Posture abnormal [Recovered/Resolved]
  - Neuropathy peripheral [Recovered/Resolved]
  - Pain in extremity [Recovered/Resolved]
  - Asthenia [Recovered/Resolved]
  - Muscular weakness [Recovered/Resolved]
  - Neuralgia [Recovered/Resolved]
  - Hypotonia [Recovered/Resolved]
